FAERS Safety Report 5592854-0 (Version None)
Quarter: 2008Q1

REPORT INFORMATION
  Report Type: 
  Country: None (occurrence: None)
  Receive Date: 20080116
  Receipt Date: 20080109
  Transmission Date: 20080703
  Serious: Yes (Other)
  Sender: FDA-Public Use
  Company Number: PHBS2008PT00702

PATIENT
  Sex: Male

DRUGS (2)
  1. DIOVAN [Suspect]
     Route: 048
  2. SIMVASTATIN [Concomitant]
     Route: 048

REACTIONS (1)
  - SKIN DISORDER [None]
